FAERS Safety Report 20423436 (Version 2)
Quarter: 2022Q1

REPORT INFORMATION
  Report Type: Spontaneous
  Country: US (occurrence: US)
  Receive Date: 20220203
  Receipt Date: 20220222
  Transmission Date: 20220424
  Serious: Yes (Other)
  Sender: FDA-Public Use
  Company Number: US-PFIZER INC-202200114621

PATIENT
  Age: 62 Year
  Sex: Female

DRUGS (4)
  1. XELJANZ [Suspect]
     Active Substance: TOFACITINIB CITRATE
     Dosage: UNK
  2. HAIR SKIN NAILS [Concomitant]
     Dosage: UNK
  3. PLAQUENIL [Concomitant]
     Active Substance: HYDROXYCHLOROQUINE SULFATE
     Dosage: UNK
  4. COMIRNATY [Concomitant]
     Active Substance: TOZINAMERAN
     Dosage: UNK

REACTIONS (6)
  - Surgery [Unknown]
  - Condition aggravated [Unknown]
  - Pain [Unknown]
  - Erythema [Unknown]
  - Pain in extremity [Unknown]
  - Feeling hot [Unknown]
